FAERS Safety Report 7212387-5 (Version None)
Quarter: 2010Q4

REPORT INFORMATION
  Report Type: 
  Country: None (occurrence: None)
  Receive Date: 20101227
  Receipt Date: 20101214
  Transmission Date: 20110411
  Serious: Yes (Hospitalization)
  Sender: FDA-Public Use
  Company Number: 023732

PATIENT
  Age: 49 Year
  Sex: Female

DRUGS (7)
  1. CIMZIA [Suspect]
     Indication: CROHN'S DISEASE
     Dosage: 400 MG, 1X/2 WEEKS, SUBCUTANEOUS
     Route: 058
     Dates: start: 20080708, end: 20080818
  2. SALAZOPYRINE [Concomitant]
  3. CIPROFLOXACIN HYDROCHLORIDE [Concomitant]
  4. DIFFU K [Concomitant]
  5. NEXIUM [Concomitant]
  6. SPECIAFOLDINE [Concomitant]
  7. DI-ANTALVIC [Concomitant]

REACTIONS (4)
  - CONVULSION [None]
  - NUCLEAR MAGNETIC RESONANCE IMAGING BRAIN ABNORMAL [None]
  - PHOTOPSIA [None]
  - VERTIGO [None]
